FAERS Safety Report 12408289 (Version 1)
Quarter: 2016Q2

REPORT INFORMATION
  Report Type: Spontaneous
  Country: US (occurrence: US)
  Receive Date: 20160526
  Receipt Date: 20160526
  Transmission Date: 20160815
  Serious: No
  Sender: FDA-Public Use
  Company Number: US-BAYER-2016-094520

PATIENT
  Age: 20 Year
  Sex: Male

DRUGS (1)
  1. KOGENATE FS [Suspect]
     Active Substance: ANTIHEMOPHILIC FACTOR, HUMAN RECOMBINANT
     Indication: FACTOR VIII DEFICIENCY
     Dosage: 3000 DF, TIW
     Route: 042
     Dates: start: 20160404

REACTIONS (1)
  - Treatment noncompliance [None]

NARRATIVE: CASE EVENT DATE: 2016
